FAERS Safety Report 7076327-4 (Version None)
Quarter: 2010Q4

REPORT INFORMATION
  Report Type: 
  Country: None (occurrence: None)
  Receive Date: 20101101
  Receipt Date: 20101022
  Transmission Date: 20110411
  Serious: Yes (Other)
  Sender: FDA-Public Use
  Company Number: US-BAYER-201038844NA

PATIENT
  Sex: Female

DRUGS (3)
  1. YAZ [Suspect]
     Route: 048
     Dates: start: 20031101
  2. YASMIN [Suspect]
     Route: 048
     Dates: start: 20031101
  3. DROSPIRENONE AND ETHINYL ESTRADIOL [Suspect]
     Route: 048
     Dates: start: 20031101

REACTIONS (2)
  - DEEP VEIN THROMBOSIS [None]
  - PULMONARY EMBOLISM [None]
